FAERS Safety Report 6822551-2 (Version None)
Quarter: 2010Q3

REPORT INFORMATION
  Report Type: 
  Country: None (occurrence: None)
  Receive Date: 20100708
  Receipt Date: 20100629
  Transmission Date: 20110219
  Serious: Yes (Other)
  Sender: FDA-Public Use
  Company Number: CH-NOVOPROD-310265

PATIENT
  Age: 45 Year
  Sex: Female
  Weight: 124 kg

DRUGS (2)
  1. VICTOZA [Suspect]
     Indication: TYPE 2 DIABETES MELLITUS
     Dosage: 0.6 MG, QD
     Route: 058
     Dates: start: 20100603, end: 20100604
  2. ATACAND [Concomitant]
     Dosage: 4 MG, QD

REACTIONS (2)
  - ANGIOEDEMA [None]
  - SWELLING FACE [None]
